FAERS Safety Report 23280247 (Version 2)
Quarter: 2024Q1

REPORT INFORMATION
  Report Type: Report from Study
  Country: CL (occurrence: CL)
  Receive Date: 20231210
  Receipt Date: 20240122
  Transmission Date: 20240410
  Serious: Yes (Hospitalization)
  Sender: FDA-Public Use
  Company Number: CL-002147023-NVSC2023CL258165

PATIENT
  Age: 38 Year
  Sex: Female

DRUGS (2)
  1. HYRIMOZ [Suspect]
     Active Substance: ADALIMUMAB-ADAZ
     Dosage: 80 MG, QW2 (DURING SECOND WEEK)
     Route: 058
  2. HYRIMOZ [Suspect]
     Active Substance: ADALIMUMAB-ADAZ
     Indication: Colitis ulcerative
     Dosage: 160 MG, QW2
     Route: 058
     Dates: start: 20230926

REACTIONS (10)
  - Uterine pain [Recovering/Resolving]
  - Proctalgia [Recovering/Resolving]
  - Gastritis [Recovering/Resolving]
  - Abdominal pain upper [Recovering/Resolving]
  - General physical health deterioration [Recovered/Resolved]
  - Gastrointestinal pain [Recovered/Resolved]
  - Colitis [Unknown]
  - Malaise [Recovered/Resolved]
  - Dyspepsia [Recovered/Resolved]
  - Drug ineffective [Recovered/Resolved]

NARRATIVE: CASE EVENT DATE: 20230926
